FAERS Safety Report 8131599-X (Version None)
Quarter: 2012Q1

REPORT INFORMATION
  Report Type: 
  Country: None (occurrence: None)
  Receive Date: 20120103
  Receipt Date: 20110830
  Transmission Date: 20120608
  Serious: No
  Sender: FDA-Public Use
  Company Number: AE-2011-001194

PATIENT
  Age: 19 Year
  Sex: Female

DRUGS (5)
  1. INCIVEK [Suspect]
     Dosage: 2250 MG (750 MG,3 IN 1 D),ORAL
     Route: 048
     Dates: start: 20110722
  2. RIBAVIRIN [Concomitant]
  3. AMBIEN [Concomitant]
  4. CELEXA [Concomitant]
  5. PEGASYS [Concomitant]

REACTIONS (1)
  - WHITE BLOOD CELL COUNT DECREASED [None]
